FAERS Safety Report 10357185 (Version 3)
Quarter: 2014Q3

REPORT INFORMATION
  Report Type: Spontaneous
  Country: BR (occurrence: BR)
  Receive Date: 20140801
  Receipt Date: 20140911
  Transmission Date: 20150326
  Serious: Yes (Other)
  Sender: FDA-Public Use
  Company Number: BR-SA-2014SA100487

PATIENT
  Sex: Male

DRUGS (1)
  1. LANTUS [Suspect]
     Active Substance: INSULIN GLARGINE
     Indication: PRODUCT USED FOR UNKNOWN INDICATION
     Dosage: PRODUCT START DATE: MORE THAN 5 YEARS DOSE:40 UNIT(S)
     Route: 065

REACTIONS (2)
  - Lipodystrophy acquired [Recovering/Resolving]
  - Haematoma [Not Recovered/Not Resolved]
